FAERS Safety Report 11301372 (Version 1)
Quarter: 2015Q3

REPORT INFORMATION
  Report Type: Spontaneous
  Country: US (occurrence: None)
  Receive Date: 20150723
  Receipt Date: 20150723
  Transmission Date: 20151125
  Serious: Yes (Other)
  Sender: FDA-Public Use
  Company Number: None

PATIENT
  Age: 74 Year
  Sex: Male

DRUGS (4)
  1. VIEKIRA PAK [Suspect]
     Active Substance: DASABUVIR\OMBITASVIR\PARITAPREVIR\RITONAVIR
     Indication: HEPATITIS
     Dosage: PAK 3 IN AM, 1 IN PM, PO
     Route: 048
     Dates: start: 20150513
  2. POTASSIUM [Concomitant]
     Active Substance: POTASSIUM
  3. NORVASC [Concomitant]
     Active Substance: AMLODIPINE BESYLATE
  4. RIBASPHERE RIBAPAK [Suspect]
     Active Substance: RIBAVIRIN
     Indication: HEPATITIS
     Dosage: 1200 MG 1 IN AM, 1 IN PM, PO
     Route: 048
     Dates: start: 20150513

REACTIONS (2)
  - Therapy cessation [None]
  - Skin discolouration [None]

NARRATIVE: CASE EVENT DATE: 20150701
